FAERS Safety Report 12695447 (Version 1)
Quarter: 2016Q3

REPORT INFORMATION
  Report Type: Spontaneous
  Country: GB (occurrence: GB)
  Receive Date: 20160829
  Receipt Date: 20160829
  Transmission Date: 20161109
  Serious: Yes (Other)
  Sender: FDA-Public Use
  Company Number: GB-JNJFOC-20160823421

PATIENT
  Age: 17 Year
  Sex: Female
  Weight: 65 kg

DRUGS (1)
  1. CILEST [Suspect]
     Active Substance: ETHINYL ESTRADIOL\NORGESTIMATE
     Indication: CONTRACEPTION
     Route: 048
     Dates: start: 20160813

REACTIONS (2)
  - Flatulence [Recovered/Resolved with Sequelae]
  - Adjustment disorder with mixed anxiety and depressed mood [Not Recovered/Not Resolved]

NARRATIVE: CASE EVENT DATE: 20160814
